FAERS Safety Report 7718562-5 (Version None)
Quarter: 2011Q3

REPORT INFORMATION
  Report Type: 
  Country: None (occurrence: None)
  Receive Date: 20110830
  Receipt Date: 20110802
  Transmission Date: 20111222
  Serious: No
  Sender: FDA-Public Use
  Company Number: US-BAYER-2011-069731

PATIENT
  Age: 56 Year
  Sex: Female

DRUGS (1)
  1. CLIMARA [Suspect]
     Indication: MENOPAUSE
     Dosage: 0.025 MG/D, CONT
     Route: 062

REACTIONS (5)
  - HOT FLUSH [None]
  - INSOMNIA [None]
  - FATIGUE [None]
  - OVARIAN CYST [None]
  - HEADACHE [None]
